FAERS Safety Report 12107310 (Version 1)
Quarter: 2016Q1

REPORT INFORMATION
  Report Type: Report from Study
  Country: FR (occurrence: FR)
  Receive Date: 20160223
  Receipt Date: 20160223
  Transmission Date: 20160526
  Serious: Yes (Hospitalization, Disabling)
  Sender: FDA-Public Use
  Company Number: PHHY2016FR023050

PATIENT
  Age: 33 Year
  Sex: Male

DRUGS (1)
  1. GILENYA [Suspect]
     Active Substance: FINGOLIMOD HYDROCHLORIDE
     Indication: RELAPSING-REMITTING MULTIPLE SCLEROSIS
     Dosage: 0.5 MG, QD
     Route: 048
     Dates: start: 20140619

REACTIONS (5)
  - Molluscum contagiosum [Unknown]
  - Genital lesion [Unknown]
  - Erectile dysfunction [Not Recovered/Not Resolved]
  - Anogenital warts [Recovering/Resolving]
  - Seborrhoeic keratosis [Unknown]

NARRATIVE: CASE EVENT DATE: 20150624
